FAERS Safety Report 6872358-5 (Version None)
Quarter: 2010Q3

REPORT INFORMATION
  Report Type: 
  Country: None (occurrence: None)
  Receive Date: 20100723
  Receipt Date: 20080916
  Transmission Date: 20110219
  Serious: Yes (Other)
  Sender: FDA-Public Use
  Company Number: US-PFIZER INC-2008078712

PATIENT
  Sex: Female
  Weight: 50 kg

DRUGS (4)
  1. CHANTIX [Suspect]
     Indication: SMOKING CESSATION THERAPY
     Dates: start: 20080505
  2. LISINOPRIL [Concomitant]
  3. ANTIDEPRESSANTS [Concomitant]
  4. ALL OTHER THERAPEUTIC PRODUCTS [Concomitant]

REACTIONS (2)
  - BLOOD PRESSURE DIASTOLIC INCREASED [None]
  - HYPERTENSION [None]
